FAERS Safety Report 15606205 (Version 1)
Quarter: 2018Q4

REPORT INFORMATION
  Report Type: Report from Study
  Country: US (occurrence: US)
  Receive Date: 20181112
  Receipt Date: 20181112
  Transmission Date: 20190205
  Serious: Yes (Other)
  Sender: FDA-Public Use
  Company Number: US-TAKEDA-2018TUS031899

PATIENT
  Age: 40 Year
  Sex: Male
  Weight: 96.6 kg

DRUGS (2)
  1. VEDOLIZUMAB [Suspect]
     Active Substance: VEDOLIZUMAB
     Indication: COLITIS ULCERATIVE
     Dosage: UNK
     Route: 042
     Dates: start: 201809
  2. PREDNISONE. [Concomitant]
     Active Substance: PREDNISONE
     Indication: COLITIS ULCERATIVE
     Dosage: 60 MG, UNK
     Route: 048
     Dates: start: 2016

REACTIONS (8)
  - Weight decreased [Unknown]
  - Haemoglobin decreased [Unknown]
  - Diarrhoea haemorrhagic [Recovered/Resolved]
  - Gastrointestinal haemorrhage [Unknown]
  - Abdominal pain [Recovered/Resolved]
  - Malaise [Unknown]
  - Arthralgia [Not Recovered/Not Resolved]
  - Stomatitis [Not Recovered/Not Resolved]
